FAERS Safety Report 5152036-3 (Version None)
Quarter: 2006Q4

REPORT INFORMATION
  Report Type: 
  Country: None (occurrence: None)
  Receive Date: 20061110
  Receipt Date: 20061110
  Transmission Date: 20070319
  Serious: Yes (Other)
  Sender: FDA-Public Use
  Company Number: None

PATIENT
  Age: 53 Year
  Sex: Female
  Weight: 160.5733 kg

DRUGS (2)
  1. MOTRIN [Suspect]
     Indication: ARTHRALGIA
  2. MOTRIN [Suspect]
     Indication: BUTTOCK PAIN

REACTIONS (1)
  - ABDOMINAL DISCOMFORT [None]
